FAERS Safety Report 6199589-4 (Version None)
Quarter: 2009Q2

REPORT INFORMATION
  Report Type: 
  Country: None (occurrence: None)
  Receive Date: 20090522
  Receipt Date: 20090513
  Transmission Date: 20091009
  Serious: Yes (Other)
  Sender: FDA-Public Use
  Company Number: B0575140A

PATIENT
  Age: 13 Month
  Sex: Male

DRUGS (1)
  1. SALBUTAMOL [Suspect]
     Indication: BRONCHITIS
     Route: 055

REACTIONS (5)
  - HAEMORRHAGE SUBCUTANEOUS [None]
  - LEUKOCYTOCLASTIC VASCULITIS [None]
  - OEDEMA [None]
  - PAIN [None]
  - PETECHIAE [None]
